FAERS Safety Report 9440543 (Version 1)
Quarter: 2013Q3

REPORT INFORMATION
  Report Type: Spontaneous
  Country: GR (occurrence: GR)
  Receive Date: 20130805
  Receipt Date: 20130805
  Transmission Date: 20140515
  Serious: Yes (Death, Hospitalization)
  Sender: FDA-Public Use
  Company Number: GR-ELI_LILLY_AND_COMPANY-GR201308000224

PATIENT
  Sex: 0

DRUGS (3)
  1. PEMETREXED [Suspect]
     Dosage: 500 MG/M2, OTHER
     Route: 042
  2. FOLATE [Concomitant]
  3. VITAMIN B12 [Concomitant]

REACTIONS (1)
  - Cerebrovascular accident [Fatal]
